FAERS Safety Report 9009123 (Version 1)
Quarter: 2013Q1

REPORT INFORMATION
  Report Type: Spontaneous
  Country: US (occurrence: US)
  Receive Date: 20130111
  Receipt Date: 20130111
  Transmission Date: 20140127
  Serious: No
  Sender: FDA-Public Use
  Company Number: US-GLAXOSMITHKLINE-A1000754A

PATIENT
  Age: 85 Year
  Sex: Male

DRUGS (6)
  1. JALYN [Suspect]
     Indication: POLLAKIURIA
     Dosage: .5MG PER DAY
     Route: 048
     Dates: start: 20121109
  2. FLOMAX [Concomitant]
  3. LOPRESSOR [Concomitant]
  4. LISINOPRIL [Concomitant]
  5. XANAX [Concomitant]
  6. FLONASE [Concomitant]

REACTIONS (5)
  - Testicular pain [Not Recovered/Not Resolved]
  - Drug ineffective [Unknown]
  - Myalgia [Unknown]
  - Muscle tightness [Unknown]
  - Spinal pain [Unknown]
